FAERS Safety Report 7527496-0 (Version None)
Quarter: 2011Q2

REPORT INFORMATION
  Report Type: 
  Country: None (occurrence: None)
  Receive Date: 20110527
  Receipt Date: 20110520
  Transmission Date: 20111010
  Serious: Yes (Hospitalization)
  Sender: FDA-Public Use
  Company Number: 201110602

PATIENT
  Age: 50 Year
  Sex: Female

DRUGS (1)
  1. LIORESAL [Suspect]
     Indication: MUSCLE SPASTICITY
     Dosage: 1400 MCG, DAILY, INTRATHECAL, DECEMBER 200X-5 (UNCLEAR)
     Route: 037
     Dates: start: 20051201

REACTIONS (11)
  - NEGATIVISM [None]
  - PAIN IN EXTREMITY [None]
  - DRUG INEFFECTIVE [None]
  - TOXICITY TO VARIOUS AGENTS [None]
  - HALLUCINATION, AUDITORY [None]
  - ACTIVITIES OF DAILY LIVING IMPAIRED [None]
  - REFUSAL OF TREATMENT BY PATIENT [None]
  - DELUSION [None]
  - PERSECUTORY DELUSION [None]
  - PSYCHOTIC DISORDER [None]
  - MUSCULOSKELETAL STIFFNESS [None]
